FAERS Safety Report 5651384-8 (Version None)
Quarter: 2008Q1

REPORT INFORMATION
  Report Type: 
  Country: None (occurrence: None)
  Receive Date: 20080131
  Receipt Date: 20071113
  Transmission Date: 20080703
  Serious: No
  Sender: FDA-Public Use
  Company Number: US200711002877

PATIENT
  Age: 40 Year
  Sex: Female

DRUGS (2)
  1. BYETTA [Suspect]
     Indication: HYPOGLYCAEMIA
     Dosage: 5 UG, 2/D, SUBCUTANEOUS
     Route: 058
     Dates: start: 20071107, end: 20071107
  2. METFORMIN HCL [Concomitant]

REACTIONS (3)
  - CONTUSION [None]
  - DYSPNOEA [None]
  - RASH PRURITIC [None]
